FAERS Safety Report 9848632 (Version 1)
Quarter: 2014Q1

REPORT INFORMATION
  Report Type: Spontaneous
  Country: US (occurrence: US)
  Receive Date: 20140128
  Receipt Date: 20140128
  Transmission Date: 20141002
  Serious: Yes (Hospitalization, Other)
  Sender: FDA-Public Use
  Company Number: US-SA-2014SA010296

PATIENT
  Age: 65 Year
  Sex: Male

DRUGS (2)
  1. LANTUS [Suspect]
     Indication: TYPE 2 DIABETES MELLITUS
     Dosage: FROM: 5 YEARS
     Route: 058
  2. LANTUS [Suspect]
     Indication: TYPE 2 DIABETES MELLITUS
     Dosage: FROM: 5 YEARS DOSE:60 UNIT(S)
     Route: 058

REACTIONS (2)
  - Myocardial infarction [Unknown]
  - Atrial fibrillation [Unknown]
